FAERS Safety Report 9091868 (Version 1)
Quarter: 2013Q1

REPORT INFORMATION
  Report Type: Report from Study
  Country: US (occurrence: US)
  Receive Date: 20130131
  Receipt Date: 20130131
  Transmission Date: 20140127
  Serious: No
  Sender: FDA-Public Use
  Company Number: US-ABBOTT-12P-163-0994727-00

PATIENT
  Age: 75 Year
  Sex: Female

DRUGS (8)
  1. HUMIRA [Suspect]
     Indication: CROHN^S DISEASE
     Dosage: 80MG FIRST LOADING
     Dates: start: 20120911, end: 20120911
  2. HUMIRA [Suspect]
     Dosage: 80MG SECOND LOADING
     Dates: start: 20120915, end: 20120915
  3. HUMIRA [Suspect]
     Dosage: 40MG QOW MAINTENANCE
     Dates: start: 20121010
  4. ASACOL [Concomitant]
     Indication: CROHN^S DISEASE
     Dates: start: 201205
  5. PREDNISONE [Concomitant]
     Indication: PRODUCT USED FOR UNKNOWN INDICATION
  6. PANTOPRAZOLE [Concomitant]
     Indication: PRODUCT USED FOR UNKNOWN INDICATION
  7. ANTIBIOTICS [Concomitant]
     Indication: GASTROINTESTINAL DISORDER
     Dates: start: 20120910
  8. HYDROCODONE [Concomitant]
     Indication: PAIN
     Dosage: PATIENT REPORTS, ^I NEVER TOOK THEM.^

REACTIONS (2)
  - Medication error [Unknown]
  - Inappropriate schedule of drug administration [Unknown]
